FAERS Safety Report 22188166 (Version 2)
Quarter: 2023Q2

REPORT INFORMATION
  Report Type: Report from Study
  Country: EG (occurrence: EG)
  Receive Date: 20230408
  Receipt Date: 20230411
  Transmission Date: 20230722
  Serious: Yes (Other)
  Sender: FDA-Public Use
  Company Number: EG-002147023-NVSC2023EG069184

PATIENT
  Age: 29 Year
  Sex: Female

DRUGS (3)
  1. GILENYA [Suspect]
     Active Substance: FINGOLIMOD HYDROCHLORIDE
     Indication: Multiple sclerosis
     Dosage: 1 DOSAGE FORM, QD (STARTED 28/06/2022 OR 04/07/2022 (PER PATIENT^S WORDS))
     Route: 048
     Dates: start: 2022
  2. CYMBATEX [Concomitant]
     Indication: Paraesthesia
     Dosage: UNK, QD AFTER LUNCH (STARTED 4 WEEKS AGO - STOPPED AFTER 10 DAYS FROM ITS  ADMINISTERATION)
     Route: 065
  3. GAPTIN [Concomitant]
     Indication: Paraesthesia
     Dosage: UNK, QD AT NIGHT (STARTED 4 WEEKS AGO - STOPPED AFTER 10 DAYS FROM ITS  ADMINISTERATION)
     Route: 065

REACTIONS (22)
  - Multiple sclerosis relapse [Recovered/Resolved]
  - Electric shock sensation [Recovered/Resolved]
  - Burning sensation [Recovered/Resolved]
  - Headache [Recovered/Resolved]
  - Feeling hot [Recovered/Resolved]
  - Feeling abnormal [Recovered/Resolved]
  - Vomiting [Recovered/Resolved]
  - Abdominal pain upper [Recovered/Resolved]
  - Pain [Recovered/Resolved]
  - Abdominal discomfort [Recovered/Resolved]
  - Decreased appetite [Recovered/Resolved]
  - Weight decreased [Recovered/Resolved]
  - Nausea [Recovered/Resolved]
  - Liver disorder [Unknown]
  - Pyrexia [Recovered/Resolved]
  - Urinary incontinence [Recovering/Resolving]
  - Seasonal allergy [Recovered/Resolved]
  - Rhinitis allergic [Recovered/Resolved]
  - Dyspnoea [Recovered/Resolved]
  - Nausea [Recovered/Resolved]
  - Fatigue [Recovered/Resolved]
  - Dizziness [Recovered/Resolved]

NARRATIVE: CASE EVENT DATE: 20221101
